FAERS Safety Report 5087151-6 (Version None)
Quarter: 2006Q3

REPORT INFORMATION
  Report Type: 
  Country: None (occurrence: None)
  Receive Date: 20060821
  Receipt Date: 20060803
  Transmission Date: 20061208
  Serious: Yes (Death)
  Sender: FDA-Public Use
  Company Number: 2006MP000954

PATIENT

DRUGS (2)
  1. AGGRASTAT [Suspect]
     Indication: CEREBRAL THROMBOSIS
     Dosage: SEE IMAGE
     Route: 042
  2. HEPARIN [Concomitant]

REACTIONS (1)
  - INTRACRANIAL PRESSURE INCREASED [None]
